FAERS Safety Report 6554933-0 (Version None)
Quarter: 2010Q1

REPORT INFORMATION
  Report Type: 
  Country: None (occurrence: None)
  Receive Date: 20100126
  Receipt Date: 20100112
  Transmission Date: 20100710
  Serious: Yes (Death, Hospitalization)
  Sender: FDA-Public Use
  Company Number: 1-21294454

PATIENT
  Age: 47 Year
  Sex: Male

DRUGS (3)
  1. ALBUTEROL TABLET 2 MG [Suspect]
     Indication: ASTHMA
     Dosage: 2 PUFFS AS NEEDED, INHALATION
     Route: 055
  2. SALMETEROL [Suspect]
     Indication: ASTHMA
     Dosage: 25 MCG 2 PUFFS 2X DAILY, INHALATION
     Route: 055
  3. FLUTICASONE PROPIONATE [Concomitant]

REACTIONS (13)
  - CARDIAC FAILURE [None]
  - CONGESTIVE CARDIOMYOPATHY [None]
  - DILATATION VENTRICULAR [None]
  - DISEASE PROGRESSION [None]
  - INCORRECT DOSE ADMINISTERED [None]
  - LEFT VENTRICULAR DYSFUNCTION [None]
  - LIPIDS INCREASED [None]
  - MITRAL VALVE INCOMPETENCE [None]
  - OBSTRUCTIVE AIRWAYS DISORDER [None]
  - PRODUCTIVE COUGH [None]
  - PULMONARY ARTERIAL PRESSURE INCREASED [None]
  - TRICUSPID VALVE INCOMPETENCE [None]
  - VENOUS PRESSURE JUGULAR INCREASED [None]
